FAERS Safety Report 13271107 (Version 4)
Quarter: 2017Q2

REPORT INFORMATION
  Report Type: Spontaneous
  Country: JP (occurrence: JP)
  Receive Date: 20170226
  Receipt Date: 20170615
  Transmission Date: 20170830
  Serious: Yes (Life-Threatening, Hospitalization, Other)
  Sender: FDA-Public Use
  Company Number: JP-AMGEN-JPNSP2017029912

PATIENT
  Age: 59 Year
  Sex: Female
  Weight: 56 kg

DRUGS (18)
  1. MAGMITT [Concomitant]
     Active Substance: MAGNESIUM OXIDE
     Indication: BREAST CANCER
     Dosage: 330 MG, TID
     Route: 048
     Dates: start: 20170105
  2. G-LASTA [Suspect]
     Active Substance: PEGFILGRASTIM
     Indication: COLONY STIMULATING FACTOR PROPHYLAXIS
     Dosage: UNK
     Route: 058
     Dates: start: 20170203, end: 20170203
  3. URSO [Concomitant]
     Active Substance: URSODIOL
     Indication: BREAST CANCER
     Dosage: 100 MG, TID
     Route: 048
     Dates: start: 20170105
  4. G-LASTA [Suspect]
     Active Substance: PEGFILGRASTIM
     Dosage: UNK
     Route: 058
     Dates: start: 20170209, end: 20170211
  5. EMEND [Concomitant]
     Active Substance: APREPITANT
     Indication: BREAST CANCER
     Dosage: UNK
     Route: 048
     Dates: start: 20170105, end: 20170202
  6. SENNOSIDE                          /00571901/ [Concomitant]
     Active Substance: SENNOSIDES A AND B
     Indication: BREAST CANCER
     Dosage: 24 MG, QD
     Route: 048
     Dates: start: 20170105
  7. ENDOXAN                            /00021101/ [Concomitant]
     Active Substance: CYCLOPHOSPHAMIDE
     Indication: BREAST CANCER
     Dosage: 880 MG, 1X/3WEEKS
     Route: 042
     Dates: start: 20170105, end: 20170202
  8. EPIRUBICIN HYDROCHLORIDE. [Concomitant]
     Active Substance: EPIRUBICIN HYDROCHLORIDE
     Indication: BREAST CANCER
     Dosage: 120 MG, 1X/3WEEKS
     Route: 042
     Dates: start: 20170105, end: 20170105
  9. EMEND [Concomitant]
     Active Substance: APREPITANT
     Indication: BREAST CANCER
     Dosage: UNK
     Route: 048
     Dates: start: 20170105, end: 20170202
  10. URSO [Concomitant]
     Active Substance: URSODIOL
     Indication: BREAST CANCER
     Dosage: 100 MG, TID
     Route: 048
     Dates: start: 20170105
  11. EPIRUBICIN HYDROCHLORIDE. [Concomitant]
     Active Substance: EPIRUBICIN HYDROCHLORIDE
     Dosage: 110 MG, UNK
     Route: 042
     Dates: start: 20170202, end: 20170202
  12. DEXART [Concomitant]
     Active Substance: DEXAMETHASONE SODIUM PHOSPHATE
     Indication: BREAST CANCER
     Dosage: 16.5 MG, 1X/3WEEKS
     Route: 042
     Dates: start: 20170105, end: 20170202
  13. ALOXI [Concomitant]
     Active Substance: PALONOSETRON HYDROCHLORIDE
     Indication: BREAST CANCER
     Dosage: 0.75 MG, 1X/3WEEKS
     Route: 042
     Dates: start: 20170105, end: 20170202
  14. PROTECADIN [Concomitant]
     Active Substance: LAFUTIDINE
     Indication: BREAST CANCER
     Dosage: 10 MG, BID
     Route: 048
     Dates: start: 20170105
  15. DECADRON [Concomitant]
     Active Substance: DEXAMETHASONE
     Indication: BREAST CANCER
     Dosage: 8 MG, UNK
     Route: 048
  16. SENNOSIDE [Concomitant]
     Active Substance: SENNOSIDES
     Indication: BREAST CANCER
     Dosage: 24 MG, QD
     Route: 048
     Dates: start: 20170105
  17. DECADRON [Concomitant]
     Active Substance: DEXAMETHASONE
     Indication: BREAST CANCER
     Dosage: 8 MG, UNK
     Route: 048
  18. ENDOXAN                            /00021101/ [Concomitant]
     Active Substance: CYCLOPHOSPHAMIDE
     Indication: BREAST CANCER
     Dosage: 880 MG, 1X/3WEEKS
     Route: 042
     Dates: start: 20170105, end: 20170202

REACTIONS (1)
  - Platelet count decreased [Recovering/Resolving]

NARRATIVE: CASE EVENT DATE: 20170209
